FAERS Safety Report 9938894 (Version 1)
Quarter: 2014Q1

REPORT INFORMATION
  Report Type: Report from Study
  Country: US (occurrence: US)
  Receive Date: 20140303
  Receipt Date: 20140303
  Transmission Date: 20141002
  Serious: No
  Sender: FDA-Public Use
  Company Number: US-ABBVIE-13P-163-1036440-00

PATIENT
  Age: 64 Year
  Sex: Male

DRUGS (1)
  1. HUMIRA [Suspect]
     Indication: PSORIATIC ARTHROPATHY
     Route: 058
     Dates: start: 20120810, end: 20121108

REACTIONS (5)
  - Rash papular [Recovering/Resolving]
  - Rash papular [Recovering/Resolving]
  - Rash papular [Recovering/Resolving]
  - Rash papular [Recovering/Resolving]
  - White blood cell count increased [Unknown]
